FAERS Safety Report 9118720 (Version 2)
Quarter: 2013Q1

REPORT INFORMATION
  Report Type: Spontaneous
  Country: US (occurrence: US)
  Receive Date: 20130226
  Receipt Date: 20130313
  Transmission Date: 20140127
  Serious: Yes (Other)
  Sender: FDA-Public Use
  Company Number: US-009507513-1302USA010148

PATIENT
  Sex: Male

DRUGS (7)
  1. PROSCAR [Suspect]
     Dosage: 5 MG, UNK, SPLIT INTO 5 PORTIONS
     Route: 048
     Dates: start: 2009
  2. FINASTERIDE [Suspect]
     Dosage: 5 MG, UNK, SPLIT INTO 5 PORTIONS
     Dates: start: 2009
  3. CELEXA [Concomitant]
  4. ADDERALL TABLETS [Concomitant]
  5. XANAX [Concomitant]
  6. CLONIDINE [Concomitant]
  7. LIPITOR [Concomitant]
     Dosage: LITTLE BIT OF LIPITOR

REACTIONS (6)
  - Drug hypersensitivity [Recovering/Resolving]
  - Pharyngeal oedema [Recovering/Resolving]
  - Anxiety [Unknown]
  - Hot flush [Recovering/Resolving]
  - Blood pressure increased [Unknown]
  - Wrong technique in drug usage process [Unknown]
